FAERS Safety Report 24352513 (Version 1)
Quarter: 2024Q3

REPORT INFORMATION
  Report Type: Spontaneous
  Country: US (occurrence: US)
  Receive Date: 20240923
  Receipt Date: 20240923
  Transmission Date: 20241016
  Serious: No
  Sender: PAREXEL
  Company Number: US-Stemline Therapeutics, Inc.-2024ST002682

PATIENT
  Age: 76 Year
  Sex: Female

DRUGS (1)
  1. ORSERDU [Suspect]
     Active Substance: ELACESTRANT
     Indication: Product used for unknown indication
     Dates: start: 20240222

REACTIONS (6)
  - Lacrimation increased [Unknown]
  - Nasopharyngitis [Unknown]
  - Carcinoembryonic antigen increased [Unknown]
  - Herpes zoster [Unknown]
  - Arthritis [Unknown]
  - Asthenia [Unknown]

NARRATIVE: CASE EVENT DATE: 20240101
